FAERS Safety Report 8799596 (Version 2)
Quarter: 2013Q1

REPORT INFORMATION
  Report Type: Spontaneous
  Country: US (occurrence: US)
  Receive Date: 20120919
  Receipt Date: 20130128
  Transmission Date: 20140127
  Serious: Yes (Other)
  Sender: FDA-Public Use
  Company Number: US-BAYER-2012-096640

PATIENT
  Age: 43 Year
  Sex: Female
  Weight: 127 kg

DRUGS (15)
  1. YAZ [Suspect]
     Indication: MENSTRUAL CYCLE MANAGEMENT
  2. GIANVI [Suspect]
  3. MULTIVITAMIN [Concomitant]
  4. PAROXETINE [Concomitant]
     Dosage: 40 MG, UNK
  5. LEVONORGESTREL W/ETHINYLESTRADIOL [Concomitant]
     Indication: CONTRACEPTION
     Dosage: ONE EVERY DAY
     Dates: start: 20110226
  6. PAXIL [Concomitant]
  7. CALCIUM +VIT D [Concomitant]
     Dosage: DAILY
     Dates: start: 20110214
  8. MUCINEX [Concomitant]
     Indication: COUGH
     Dosage: UNK
     Dates: start: 20110226
  9. MUCINEX [Concomitant]
     Indication: DYSPNOEA
  10. DAYQUIL [DEXTROMET HBR,GUAIF,PARACET,PSEUDOEPH HCL] [Concomitant]
     Indication: COUGH
  11. DAYQUIL [DEXTROMET HBR,GUAIF,PARACET,PSEUDOEPH HCL] [Concomitant]
     Indication: DYSPNOEA
  12. BENZONATATE [Concomitant]
     Indication: COUGH
     Dosage: 100 MG TAKE ONE CAPSULE EVERY 8 HOURS AS NEEDED
     Route: 048
     Dates: start: 20110226, end: 20110308
  13. FERROUS SULFATE [Concomitant]
     Dosage: 325 MG, UNK
     Route: 048
     Dates: start: 20110308
  14. THROAT PREPARATIONS [Concomitant]
     Indication: OROPHARYNGEAL PAIN
     Dosage: 1 LOZENGE THREE TIMES A DAY AS NEEDED
     Dates: start: 20110226, end: 20110308
  15. ASA [Concomitant]
     Dosage: UNK
     Dates: start: 20110308

REACTIONS (2)
  - Deep vein thrombosis [None]
  - Deep vein thrombosis [None]
